FAERS Safety Report 8385585-5 (Version None)
Quarter: 2012Q2

REPORT INFORMATION
  Report Type: 
  Country: None (occurrence: None)
  Receive Date: 20120525
  Receipt Date: 20120516
  Transmission Date: 20120825
  Serious: Yes (Other)
  Sender: FDA-Public Use
  Company Number: US-RB-040295-12

PATIENT
  Age: 15 Year
  Sex: Female
  Weight: 142 kg

DRUGS (1)
  1. MUCINEX [Suspect]
     Indication: PRODUCT USED FOR UNKNOWN INDICATION
     Dosage: 1 BLUE LARGE HORSE PILL ADMINISTERED AT HOSPITAL ON 15-MAY-2012 BETWEEN 10:30-11PM
     Route: 048
     Dates: start: 20120515

REACTIONS (7)
  - EYE PRURITUS [None]
  - ABDOMINAL PAIN UPPER [None]
  - EYE SWELLING [None]
  - EYE COLOUR CHANGE [None]
  - CHEST DISCOMFORT [None]
  - EYE DISORDER [None]
  - HEADACHE [None]
